FAERS Safety Report 17690249 (Version 1)
Quarter: 2020Q2

REPORT INFORMATION
  Report Type: Spontaneous
  Country: CN (occurrence: CN)
  Receive Date: 20200421
  Receipt Date: 20200421
  Transmission Date: 20200714
  Serious: Yes (Death, Other)
  Sender: FDA-Public Use
  Company Number: NVSC2020CN105733

PATIENT
  Age: 58 Year
  Sex: Male

DRUGS (1)
  1. METHYLPREDNISOLONE. [Suspect]
     Active Substance: METHYLPREDNISOLONE
     Indication: CORONAVIRUS INFECTION
     Dosage: 80 MG, QD (DAY 3-39)
     Route: 065

REACTIONS (3)
  - Hypoxia [Not Recovered/Not Resolved]
  - Multiple organ dysfunction syndrome [Fatal]
  - Product use in unapproved indication [Unknown]
